FAERS Safety Report 26121788 (Version 1)
Quarter: 2025Q4

REPORT INFORMATION
  Report Type: Spontaneous
  Country: EU (occurrence: EU)
  Receive Date: 20251204
  Receipt Date: 20251204
  Transmission Date: 20260117
  Serious: Yes (Other)
  Sender: UCB
  Company Number: EU-ZENTIVA-2025-ZT-052596

PATIENT

DRUGS (1)
  1. LEVETIRACETAM [Suspect]
     Active Substance: LEVETIRACETAM
     Indication: Generalised tonic-clonic seizure

REACTIONS (4)
  - Generalised tonic-clonic seizure [Recovering/Resolving]
  - Anticonvulsant drug level below therapeutic [Recovered/Resolved]
  - Hyperventilation [Recovered/Resolved]
  - Electroencephalogram abnormal [Recovered/Resolved]
